FAERS Safety Report 9412032 (Version 1)
Quarter: 2013Q3

REPORT INFORMATION
  Report Type: Spontaneous
  Country: US (occurrence: US)
  Receive Date: 20130722
  Receipt Date: 20130722
  Transmission Date: 20140515
  Serious: Yes (Death, Other)
  Sender: FDA-Public Use
  Company Number: 2013SP001886

PATIENT
  Age: 40 Year
  Sex: Male

DRUGS (1)
  1. LATUDA [Suspect]
     Indication: PRODUCT USED FOR UNKNOWN INDICATION
     Route: 048
     Dates: start: 2012, end: 2013

REACTIONS (3)
  - Pulmonary oedema [Not Recovered/Not Resolved]
  - Sudden death [Fatal]
  - Vomiting [Unknown]
